FAERS Safety Report 8607403-X (Version None)
Quarter: 2012Q3

REPORT INFORMATION
  Report Type: 
  Country: None (occurrence: None)
  Receive Date: 20120809
  Receipt Date: 20120809
  Transmission Date: 20120928
  Serious: Yes (Life-Threatening)
  Sender: FDA-Public Use
  Company Number: None

PATIENT
  Age: 73 Year
  Sex: Male
  Weight: 75.7 kg

DRUGS (2)
  1. ADALIMUMAB [Suspect]
     Indication: RHEUMATOID ARTHRITIS
     Dosage: 40 MG SQ
     Route: 058
     Dates: start: 20100902, end: 20110922
  2. ADALIMUMAB [Suspect]
     Indication: FELTY'S SYNDROME
     Dosage: 40 MG SQ
     Route: 058
     Dates: start: 20100902, end: 20110922

REACTIONS (1)
  - RASH [None]
